FAERS Safety Report 9242269 (Version 1)
Quarter: 2013Q2

REPORT INFORMATION
  Report Type: Spontaneous
  Country: US (occurrence: US)
  Receive Date: 20130419
  Receipt Date: 20130419
  Transmission Date: 20140414
  Serious: Yes (Other)
  Sender: FDA-Public Use
  Company Number: US-VERTEX PHARMACEUTICALS INC.-2013-004940

PATIENT
  Age: 46 Year
  Sex: Male
  Weight: 103 kg

DRUGS (4)
  1. INCIVEK [Suspect]
     Indication: HEPATITIS C
     Dosage: UNK
     Route: 048
     Dates: start: 201210, end: 201303
  2. RIBAVIRIN [Suspect]
     Indication: HEPATITIS C
     Dosage: UNK
     Dates: start: 201210, end: 201303
  3. INTERFERON [Suspect]
     Indication: HEPATITIS C
     Dosage: UNK
     Dates: start: 201210, end: 201303
  4. CELEBREX [Concomitant]
     Indication: DEPRESSION

REACTIONS (14)
  - Thrombosis [Unknown]
  - Hepatic pain [Unknown]
  - Drug abuse [Unknown]
  - Erythema [Unknown]
  - Skin ulcer [Unknown]
  - Mood swings [Unknown]
  - Nail disorder [Not Recovered/Not Resolved]
  - Stomatitis [Unknown]
  - Constipation [Unknown]
  - Feeling hot [Unknown]
  - Nail discolouration [Not Recovered/Not Resolved]
  - Proctalgia [Unknown]
  - Anorectal discomfort [Unknown]
  - Anal pruritus [Unknown]
